FAERS Safety Report 7193846-0 (Version None)
Quarter: 2010Q4

REPORT INFORMATION
  Report Type: 
  Country: None (occurrence: None)
  Receive Date: 20101223
  Receipt Date: 20101220
  Transmission Date: 20110411
  Serious: Yes (Other)
  Sender: FDA-Public Use
  Company Number: US-US-EMD SERONO, INC.-7032742

PATIENT
  Sex: Female

DRUGS (3)
  1. REBIF [Suspect]
     Indication: MULTIPLE SCLEROSIS
     Route: 058
     Dates: start: 20080625
  2. DIABETES MEDICATION [Concomitant]
     Indication: DIABETES MELLITUS
  3. UNSPECIFIED MEDICATION [Concomitant]

REACTIONS (4)
  - BLOOD GLUCOSE INCREASED [None]
  - HYPERHIDROSIS [None]
  - MALAISE [None]
  - NAUSEA [None]
